FAERS Safety Report 16539387 (Version 1)
Quarter: 2019Q3

REPORT INFORMATION
  Report Type: Spontaneous
  Country: FR (occurrence: FR)
  Receive Date: 20190708
  Receipt Date: 20190708
  Transmission Date: 20191004
  Serious: Yes (Death, Hospitalization, Other)
  Sender: FDA-Public Use
  Company Number: FR-PFIZER INC-2019284958

PATIENT
  Age: 68 Year
  Sex: Male

DRUGS (17)
  1. PREGABALIN. [Suspect]
     Active Substance: PREGABALIN
     Dosage: UNK
     Route: 065
  2. TRIATEC [RAMIPRIL] [Interacting]
     Active Substance: RAMIPRIL
     Dosage: 1 DF, 1X/DAY IN THE EVENING
     Route: 065
  3. LANTUS [Concomitant]
     Active Substance: INSULIN GLARGINE
     Dosage: 36 IU, 1X/DAY
     Route: 065
  4. COTRIATEC [Interacting]
     Active Substance: HYDROCHLOROTHIAZIDE\RAMIPRIL
     Dosage: 1 DF, 1X/DAY IN THE MORNING
     Route: 065
  5. NATISPRAY [Concomitant]
     Active Substance: NITROGLYCERIN
     Dosage: 0.3 MG, AS NEEDED
     Route: 065
  6. ADENURIC [Concomitant]
     Active Substance: FEBUXOSTAT
     Dosage: 1 DF, 1X/DAY IN THE MORNING
     Route: 065
  7. PROCORALAN [Concomitant]
     Active Substance: IVABRADINE
     Dosage: 1 DF, 2X/DAY 1 DF IN THE MORNING AND 1 DF IN THE EVENING
     Route: 065
  8. RAMIPRIL. [Concomitant]
     Active Substance: RAMIPRIL
     Dosage: 5 MG, 1X/DAY
     Route: 065
  9. LIPTRUZET [Concomitant]
     Active Substance: ATORVASTATIN CALCIUM\EZETIMIBE
     Dosage: 1 DF, 1X/DAY IN THE EVENING
     Route: 065
  10. TRULICITY [Concomitant]
     Active Substance: DULAGLUTIDE
     Dosage: 1 INJECTION PER WEEK
     Route: 065
  11. ASPIRIN PROTECT [Concomitant]
     Active Substance: ASPIRIN
     Dosage: 1 DF, 1X/DAY IN THE MORNING
     Route: 065
  12. LANTUS [Concomitant]
     Active Substance: INSULIN GLARGINE
     Dosage: 20 IU, 1X/DAY IN THE EVENING
     Route: 065
  13. DULOXETINE HYDROCHLORIDE. [Interacting]
     Active Substance: DULOXETINE HYDROCHLORIDE
     Dosage: UNK
     Route: 065
  14. NOVORAPID [Concomitant]
     Active Substance: INSULIN ASPART
     Dosage: UNK
     Route: 065
  15. STAGID [Concomitant]
     Active Substance: METFORMIN PAMOATE
     Dosage: 1 DF, 3X/DAY?  IN THE MORNING, AFTERNOON AND EVENING
     Route: 065
  16. HYDROCHLOROTHIAZIDE/RAMIPRIL [Concomitant]
     Dosage: 1 DF, 1X/DAY
     Route: 065
  17. AMLOR [Concomitant]
     Active Substance: AMLODIPINE BESYLATE
     Dosage: 1 DF, 2X/DAY (1 DF IN THE MORNING AND 1 DF IN THE EVENING)
     Route: 065

REACTIONS (7)
  - Condition aggravated [Unknown]
  - Glioblastoma [Fatal]
  - Medication error [Unknown]
  - Blindness unilateral [Unknown]
  - Labelled drug-drug interaction medication error [Unknown]
  - Neuralgia [Unknown]
  - Visual acuity reduced [Unknown]
